FAERS Safety Report 20535181 (Version 1)
Quarter: 2022Q1

REPORT INFORMATION
  Report Type: Spontaneous
  Country: US (occurrence: None)
  Receive Date: 20220302
  Receipt Date: 20220302
  Transmission Date: 20220423
  Serious: No
  Sender: FDA-Public Use
  Company Number: US-ROCHE-2886004

PATIENT
  Age: 14 Year
  Sex: Female
  Weight: 39.952 kg

DRUGS (3)
  1. NUTROPIN [Suspect]
     Active Substance: SOMATROPIN
     Indication: Turner^s syndrome
     Dosage: YES
     Route: 058
     Dates: start: 2018
  2. NUTROPIN [Suspect]
     Active Substance: SOMATROPIN
  3. ESTRADIOL [Concomitant]
     Active Substance: ESTRADIOL
     Indication: Turner^s syndrome
     Dosage: TAKES 1/6 OF THE 0.25 MG PATCH EVERYDAY
     Dates: start: 202012

REACTIONS (3)
  - Product dose omission issue [Unknown]
  - Needle issue [Unknown]
  - No adverse event [Unknown]

NARRATIVE: CASE EVENT DATE: 20210804
